FAERS Safety Report 7373211-3 (Version None)
Quarter: 2011Q1

REPORT INFORMATION
  Report Type: 
  Country: None (occurrence: None)
  Receive Date: 20110324
  Receipt Date: 20110317
  Transmission Date: 20110831
  Serious: Yes (Other)
  Sender: FDA-Public Use
  Company Number: US-PFIZER INC-2011011031

PATIENT
  Sex: Male

DRUGS (10)
  1. PRILOSEC [Concomitant]
     Indication: GASTROOESOPHAGEAL REFLUX DISEASE
     Dosage: UNK
     Dates: start: 20030101, end: 20090101
  2. BACTRIM [Concomitant]
     Indication: ANTIBIOTIC THERAPY
     Dosage: UNK
     Dates: start: 20070101, end: 20090101
  3. RISPERDAL [Concomitant]
     Indication: BIPOLAR DISORDER
     Dosage: 2 MG, 2X/DAY
     Dates: start: 20060101
  4. RISPERDAL [Concomitant]
     Indication: PSYCHOTIC DISORDER
  5. RISPERIDONE [Concomitant]
     Indication: SCHIZOAFFECTIVE DISORDER BIPOLAR TYPE
  6. RISPERIDONE [Concomitant]
     Indication: PSYCHOTIC DISORDER
  7. LORTAB [Concomitant]
     Indication: PAIN
     Dosage: UNK
     Dates: start: 20050101, end: 20090101
  8. RISPERIDONE [Concomitant]
     Indication: BIPOLAR DISORDER
     Dosage: UNK
     Dates: start: 20060101
  9. CHANTIX [Suspect]
     Indication: SMOKING CESSATION THERAPY
     Dosage: STARTER AND CONTINUOUS PACKS
     Dates: start: 20080416, end: 20080528
  10. RISPERDAL [Concomitant]
     Indication: SCHIZOAFFECTIVE DISORDER BIPOLAR TYPE

REACTIONS (11)
  - VISUAL IMPAIRMENT [None]
  - SCHIZOAFFECTIVE DISORDER BIPOLAR TYPE [None]
  - DYSKINESIA [None]
  - INSOMNIA [None]
  - CONDITION AGGRAVATED [None]
  - DEPRESSION [None]
  - BIPOLAR DISORDER [None]
  - DIZZINESS [None]
  - ANXIETY [None]
  - MUSCLE SPASMS [None]
  - PANIC ATTACK [None]
